FAERS Safety Report 19910011 (Version 5)
Quarter: 2022Q2

REPORT INFORMATION
  Report Type: Report from Study
  Country: US (occurrence: US)
  Receive Date: 20211003
  Receipt Date: 20220406
  Transmission Date: 20220721
  Serious: Yes (Other)
  Sender: FDA-Public Use
  Company Number: NVSC2021US220621

PATIENT
  Age: 75 Year
  Sex: Female

DRUGS (1)
  1. ENTRESTO [Suspect]
     Active Substance: SACUBITRIL\VALSARTAN
     Indication: Product used for unknown indication
     Dosage: 24 MG, BID (24/26 MG)
     Route: 048

REACTIONS (11)
  - Cardiovascular disorder [Unknown]
  - Chest pain [Unknown]
  - Generalised anxiety disorder [Unknown]
  - Insomnia [Unknown]
  - Fatigue [Unknown]
  - Cough [Recovering/Resolving]
  - Nasopharyngitis [Recovering/Resolving]
  - Ejection fraction decreased [Unknown]
  - Bacterial infection [Recovering/Resolving]
  - Discharge [Not Recovered/Not Resolved]
  - Wrong technique in product usage process [Unknown]

NARRATIVE: CASE EVENT DATE: 20211201
